FAERS Safety Report 8023042-6 (Version None)
Quarter: 2012Q1

REPORT INFORMATION
  Report Type: 
  Country: None (occurrence: None)
  Receive Date: 20120104
  Receipt Date: 20111226
  Transmission Date: 20120608
  Serious: Yes (Other)
  Sender: FDA-Public Use
  Company Number: US-ASTRAZENECA-2011SE78783

PATIENT
  Age: 24 Year
  Sex: Male

DRUGS (4)
  1. FENTANYL [Suspect]
     Indication: ANALGESIC THERAPY
     Route: 042
  2. FENTANYL [Suspect]
     Route: 042
  3. PROPOFOL [Suspect]
     Dosage: TITRATED UP TO 66 MG/KG/MIN ON DAY 2 AND TOTAL TOTAL DOSE OF 40,650 MG OVER 118 HR.
     Route: 041
  4. PROPOFOL [Suspect]
     Indication: SEDATION
     Dosage: 8 MG/KG/MIN
     Route: 041

REACTIONS (1)
  - PROPOFOL INFUSION SYNDROME [None]
